FAERS Safety Report 4649327-9 (Version None)
Quarter: 2005Q2

REPORT INFORMATION
  Report Type: 
  Country: None (occurrence: None)
  Receive Date: 20050429
  Receipt Date: 20050422
  Transmission Date: 20051028
  Serious: Yes (Hospitalization)
  Sender: FDA-Public Use
  Company Number: FR-ABBOTT-05P-056-0298434-00

PATIENT
  Age: 6 Year
  Sex: Male
  Weight: 21 kg

DRUGS (6)
  1. ZECLAR [Suspect]
     Indication: PYREXIA
     Route: 048
     Dates: start: 20050311, end: 20050314
  2. ZECLAR [Suspect]
     Indication: COUGH
  3. IBUPROFEN [Concomitant]
     Indication: PYREXIA
     Dates: start: 20050311
  4. IBUPROFEN [Concomitant]
     Indication: COUGH
  5. ACETAMINOPHEN [Concomitant]
     Indication: PYREXIA
     Dates: start: 20050311
  6. ACETAMINOPHEN [Concomitant]
     Indication: COUGH

REACTIONS (5)
  - ASTHENIA [None]
  - COUGH [None]
  - MYALGIA [None]
  - TONSILLAR HYPERTROPHY [None]
  - TYMPANIC MEMBRANE DISORDER [None]
